FAERS Safety Report 4589480-9 (Version None)
Quarter: 2005Q1

REPORT INFORMATION
  Report Type: 
  Country: None (occurrence: None)
  Receive Date: 20050216
  Receipt Date: 20040329
  Transmission Date: 20050727
  Serious: Yes (Death, Hospitalization)
  Sender: FDA-Public Use
  Company Number: 7702

PATIENT
  Age: 75 Year
  Sex: Male

DRUGS (8)
  1. AMIODARONE [Suspect]
     Indication: ATRIAL FIBRILLATION
     Dosage: 200 MG BID PO
     Route: 048
     Dates: start: 20031013, end: 20040224
  2. ASPIRIN [Suspect]
     Dates: start: 20030901
  3. WARFARIN SODIUM [Concomitant]
  4. FRUSEMIDE [Concomitant]
  5. SIMVASTATIN [Concomitant]
  6. MEBEVERINE [Concomitant]
  7. FYBOGEL (PLANTAGO OVATA) [Concomitant]
  8. CALCIUM CARBONATE [Concomitant]

REACTIONS (5)
  - CARDIAC DISORDER [None]
  - DYSPNOEA [None]
  - GENERAL PHYSICAL HEALTH DETERIORATION [None]
  - PULMONARY FIBROSIS [None]
  - PULMONARY HYPERTENSION [None]
